FAERS Safety Report 11906850 (Version 1)
Quarter: 2016Q1

REPORT INFORMATION
  Report Type: Spontaneous
  Country: CH (occurrence: CH)
  Receive Date: 20160111
  Receipt Date: 20160111
  Transmission Date: 20160526
  Serious: Yes (Hospitalization)
  Sender: FDA-Public Use
  Company Number: CH-MYLANLABS-2016M1000783

PATIENT

DRUGS (1)
  1. VINORELBINE [Suspect]
     Active Substance: VINORELBINE\VINORELBINE TARTRATE
     Indication: PLASMA CELL MYELOMA
     Dosage: 35 MG/M2; ON DAY 1
     Route: 041

REACTIONS (2)
  - Renal failure [Unknown]
  - Febrile neutropenia [Unknown]
